FAERS Safety Report 9216292 (Version 1)
Quarter: 2013Q2

REPORT INFORMATION
  Report Type: Report from Study
  Country: KR (occurrence: KR)
  Receive Date: 20130408
  Receipt Date: 20130408
  Transmission Date: 20140414
  Serious: Yes (Other)
  Sender: FDA-Public Use
  Company Number: KR-NAPPMUNDI-GBR-2013-0013577

PATIENT
  Age: 72 Year
  Sex: Male

DRUGS (4)
  1. OXYCODONE [Suspect]
     Indication: CANCER PAIN
     Dosage: UNK
     Route: 048
     Dates: start: 20110421
  2. MORPHINE SULFATE [Concomitant]
     Dosage: UNK
     Dates: start: 20110421
  3. FENTANYL [Concomitant]
     Dosage: UNK
     Dates: start: 20110422
  4. DUPHALAC                           /00163401/ [Concomitant]
     Dosage: UNK
     Dates: start: 20110422

REACTIONS (2)
  - Delirium [Unknown]
  - Asthenia [Unknown]
